FAERS Safety Report 6588641-7 (Version None)
Quarter: 2010Q1

REPORT INFORMATION
  Report Type: 
  Country: None (occurrence: None)
  Receive Date: 20100218
  Receipt Date: 20091123
  Transmission Date: 20100710
  Serious: No
  Sender: FDA-Public Use
  Company Number: US-ALLERGAN-0916343US

PATIENT
  Age: 65 Year
  Sex: Female
  Weight: 58.957 kg

DRUGS (4)
  1. BOTOX [Suspect]
     Indication: TORTICOLLIS
     Dosage: 120 UNITS, SINGLE
     Dates: start: 20090828, end: 20090828
  2. TRAMADOL [Concomitant]
  3. FOSAMAX [Concomitant]
  4. LOTREL [Concomitant]

REACTIONS (2)
  - MUSCULAR WEAKNESS [None]
  - THERAPEUTIC RESPONSE DECREASED [None]
